FAERS Safety Report 7822576-4 (Version None)
Quarter: 2011Q4

REPORT INFORMATION
  Report Type: 
  Country: None (occurrence: None)
  Receive Date: 20111018
  Receipt Date: 20111010
  Transmission Date: 20120403
  Serious: Yes (Hospitalization)
  Sender: FDA-Public Use
  Company Number: US-CELGENEUS-163-21880-11101242

PATIENT
  Sex: Male
  Weight: 68.1 kg

DRUGS (12)
  1. REVLIMID [Suspect]
     Dosage: 5 MILLIGRAM
     Route: 048
     Dates: start: 20110801, end: 20110101
  2. NEXIUM [Concomitant]
     Dosage: 40 MILLIGRAM
     Route: 048
  3. ASPIRIN [Concomitant]
     Dosage: 81 MILLIGRAM
     Route: 048
  4. CALCITRIOL [Concomitant]
     Dosage: .5 MICROGRAM
     Route: 048
  5. LISINOPRIL [Concomitant]
     Dosage: 10 MILLIGRAM
     Route: 048
  6. FUROSEMIDE [Concomitant]
     Dosage: 20 MILLIGRAM
     Route: 048
  7. AMIODARONE HCL [Concomitant]
     Indication: ARRHYTHMIA
     Dosage: 200 MILLIGRAM
     Route: 048
  8. DEXAMETHASONE [Concomitant]
     Dosage: 20 MILLIGRAM
     Route: 048
  9. REVLIMID [Suspect]
     Dosage: 10 MILLIGRAM
     Route: 048
     Dates: start: 20110701, end: 20110101
  10. REVLIMID [Suspect]
     Indication: MULTIPLE MYELOMA
     Dosage: 25 MILLIGRAM
     Route: 048
     Dates: start: 20110601, end: 20110101
  11. AMLODIPINE [Concomitant]
     Dosage: 5 MILLIGRAM
     Route: 048
  12. LISINOPRIL [Concomitant]

REACTIONS (4)
  - TACHYCARDIA [None]
  - RENAL FAILURE [None]
  - DEHYDRATION [None]
  - BACK DISORDER [None]
